FAERS Safety Report 25821867 (Version 1)
Quarter: 2025Q3

REPORT INFORMATION
  Report Type: Report from Study
  Country: IN (occurrence: IN)
  Receive Date: 20250919
  Receipt Date: 20250919
  Transmission Date: 20251020
  Serious: Yes (Hospitalization)
  Sender: ROCHE
  Company Number: IN-ROCHE-10000336227

PATIENT
  Age: 67 Year
  Sex: Male
  Weight: 70 kg

DRUGS (1)
  1. VABYSMO [Suspect]
     Active Substance: FARICIMAB-SVOA
     Indication: Diabetic retinal oedema
     Route: 050
     Dates: start: 20250610

REACTIONS (6)
  - Thalassaemia [Unknown]
  - Full blood count abnormal [Unknown]
  - Off label use [Unknown]
  - Renal disorder [Unknown]
  - Cardiac disorder [Unknown]
  - Malaise [Unknown]
